FAERS Safety Report 10958614 (Version 1)
Quarter: 2015Q1

REPORT INFORMATION
  Report Type: Report from Study
  Country: FR (occurrence: FR)
  Receive Date: 20150326
  Receipt Date: 20150326
  Transmission Date: 20150721
  Serious: No
  Sender: FDA-Public Use
  Company Number: FR-INTERMUNE, INC.-201402IM005000

PATIENT
  Age: 55 Year
  Sex: Male
  Weight: 102 kg

DRUGS (10)
  1. ESBRIET [Suspect]
     Active Substance: PIRFENIDONE
     Indication: IDIOPATHIC PULMONARY FIBROSIS
     Dosage: 2403 MG
     Route: 048
     Dates: start: 20131101, end: 20140214
  2. ANTIBIOTICS [Concomitant]
     Active Substance: UNSPECIFIED INGREDIENT
     Indication: PYREXIA
     Dates: start: 20140214, end: 20140222
  3. OMEPRAZOLE. [Concomitant]
     Active Substance: OMEPRAZOLE
     Indication: GASTROOESOPHAGEAL REFLUX DISEASE
     Dates: start: 20130927
  4. LANZOPRAZOLE [Concomitant]
     Active Substance: LANSOPRAZOLE
     Dates: start: 20140130, end: 2015
  5. DEBRIDAT [Concomitant]
     Active Substance: TRIMEBUTINE MALEATE
     Indication: ABDOMINAL DISTENSION
     Dates: start: 20140115, end: 20140204
  6. METEOSPASMYL [Concomitant]
     Active Substance: ALVERINE CITRATE\DIMETHICONE
     Indication: ABDOMINAL DISTENSION
     Dates: start: 20140115, end: 2015
  7. ESBRIET [Suspect]
     Active Substance: PIRFENIDONE
     Dosage: 801 MG
     Route: 048
     Dates: start: 20140221
  8. ESBRIET [Suspect]
     Active Substance: PIRFENIDONE
     Dosage: 2403 MG
     Route: 048
     Dates: start: 20140321
  9. LANZOPRAZOLE [Concomitant]
     Active Substance: LANSOPRAZOLE
     Indication: GASTROOESOPHAGEAL REFLUX DISEASE
     Dates: start: 20131101, end: 20140129
  10. ESBRIET [Suspect]
     Active Substance: PIRFENIDONE
     Dosage: 1602 MG
     Route: 048
     Dates: start: 20140307

REACTIONS (3)
  - Asthenia [Recovered/Resolved]
  - Nausea [Recovered/Resolved]
  - Abdominal distension [Not Recovered/Not Resolved]

NARRATIVE: CASE EVENT DATE: 20131101
